FAERS Safety Report 7221209-8 (Version None)
Quarter: 2011Q1

REPORT INFORMATION
  Report Type: 
  Country: None (occurrence: None)
  Receive Date: 20110112
  Receipt Date: 20110103
  Transmission Date: 20110831
  Serious: Yes (Hospitalization, Other)
  Sender: FDA-Public Use
  Company Number: US-ASTRAZENECA-2011SE00127

PATIENT
  Age: 68 Year
  Sex: Female

DRUGS (8)
  1. SPIRIVA [Concomitant]
  2. ALBUTEROL [Concomitant]
  3. IPRATROPIUM BROMIDE [Concomitant]
  4. SYMBICORT [Suspect]
     Indication: CHRONIC OBSTRUCTIVE PULMONARY DISEASE
     Dosage: TOTAL DAILY DOSE 160/4.5 MCG,TWO, TWICE DAILY
     Route: 055
     Dates: start: 20100101
  5. SYMBICORT [Suspect]
     Indication: BRONCHITIS
     Dosage: TOTAL DAILY DOSE 160/4.5 MCG,TWO, TWICE DAILY
     Route: 055
     Dates: start: 20100101
  6. VERAPAMIL [Concomitant]
  7. LASIX [Concomitant]
  8. PREDNISONE [Concomitant]

REACTIONS (5)
  - SPINAL FRACTURE [None]
  - DYSPNOEA [None]
  - PANIC ATTACK [None]
  - ANAEMIA [None]
  - BRONCHITIS [None]
